FAERS Safety Report 13440536 (Version 3)
Quarter: 2017Q2

REPORT INFORMATION
  Report Type: Report from Study
  Country: CO (occurrence: CO)
  Receive Date: 20170413
  Receipt Date: 20170516
  Transmission Date: 20170830
  Serious: Yes (Death, Hospitalization, Other)
  Sender: FDA-Public Use
  Company Number: CO-AMGEN-COLSL2017055193

PATIENT
  Age: 26 Year
  Sex: Male

DRUGS (1)
  1. NPLATE [Suspect]
     Active Substance: ROMIPLOSTIM
     Indication: IMMUNE THROMBOCYTOPENIC PURPURA
     Dosage: 154 MUG, QWK
     Route: 058
     Dates: start: 20161216, end: 20170418

REACTIONS (2)
  - Pyrexia [Not Recovered/Not Resolved]
  - Systemic lupus erythematosus [Fatal]

NARRATIVE: CASE EVENT DATE: 20170408
